FAERS Safety Report 8452642-4 (Version None)
Quarter: 2012Q2

REPORT INFORMATION
  Report Type: 
  Country: None (occurrence: None)
  Receive Date: 20120620
  Receipt Date: 20120421
  Transmission Date: 20120825
  Serious: No
  Sender: FDA-Public Use
  Company Number: US-VERTEX PHARMACEUTICALS INC.-AE-2012-005746

PATIENT
  Weight: 79.45 kg

DRUGS (6)
  1. RIBAVIRIN [Concomitant]
     Indication: HEPATITIS C
     Route: 048
     Dates: start: 20120420
  2. PEGASYS [Concomitant]
     Indication: HEPATITIS C
     Route: 058
     Dates: start: 20120420
  3. INCIVEK [Suspect]
     Indication: HEPATITIS C
     Route: 048
     Dates: start: 20120420
  4. DM MEDICINE [Concomitant]
     Indication: DIABETES MELLITUS
  5. LASIX [Concomitant]
     Indication: BLOOD PRESSURE
     Route: 048
  6. PRILOSEC [Concomitant]
     Route: 048

REACTIONS (1)
  - HEADACHE [None]
